FAERS Safety Report 6939393-X (Version None)
Quarter: 2010Q3

REPORT INFORMATION
  Report Type: 
  Country: None (occurrence: None)
  Receive Date: 20100819
  Receipt Date: 20100805
  Transmission Date: 20110219
  Serious: Yes (Hospitalization)
  Sender: FDA-Public Use
  Company Number: CLOF-1000794

PATIENT
  Age: 82 Year
  Sex: Male
  Weight: 77 kg

DRUGS (4)
  1. CLOFARABINE OR PLACEBO (CODE NOT BROKEN) [Suspect]
     Indication: ACUTE MYELOID LEUKAEMIA
     Dates: start: 20090914, end: 20090918
  2. CLOFARABINE OR PLACEBO (CODE NOT BROKEN) [Suspect]
     Indication: ACUTE MYELOID LEUKAEMIA
     Dates: start: 20091202, end: 20091205
  3. CYTARABINE [Suspect]
     Indication: ACUTE MYELOID LEUKAEMIA
     Dosage: 1940 MG, INTRAVENOUS; 1920 MG, INTRAVENOUS
     Route: 042
     Dates: start: 20090914, end: 20090918
  4. CYTARABINE [Suspect]
     Indication: ACUTE MYELOID LEUKAEMIA
     Dosage: 1940 MG, INTRAVENOUS; 1920 MG, INTRAVENOUS
     Route: 042
     Dates: start: 20091202, end: 20091205

REACTIONS (13)
  - ALANINE AMINOTRANSFERASE INCREASED [None]
  - ASPARTATE AMINOTRANSFERASE INCREASED [None]
  - BLOOD CHLORIDE INCREASED [None]
  - BLOOD GLUCOSE INCREASED [None]
  - BLOOD POTASSIUM DECREASED [None]
  - BLOOD SODIUM DECREASED [None]
  - DECREASED APPETITE [None]
  - DEHYDRATION [None]
  - DIARRHOEA [None]
  - HYPERURICAEMIA [None]
  - NAUSEA [None]
  - RENAL FAILURE ACUTE [None]
  - VOMITING [None]
